FAERS Safety Report 25447634 (Version 1)
Quarter: 2025Q2

REPORT INFORMATION
  Report Type: Spontaneous
  Country: US (occurrence: None)
  Receive Date: 20250617
  Receipt Date: 20250617
  Transmission Date: 20250716
  Serious: No
  Sender: FDA-CTU
  Company Number: None

PATIENT

DRUGS (1)
  1. TOSYMRA [Suspect]
     Active Substance: SUMATRIPTAN

REACTIONS (1)
  - Off label use [None]
